FAERS Safety Report 7949935-3 (Version None)
Quarter: 2011Q4

REPORT INFORMATION
  Report Type: 
  Country: None (occurrence: None)
  Receive Date: 20111130
  Receipt Date: 20111118
  Transmission Date: 20120403
  Serious: Yes (Hospitalization)
  Sender: FDA-Public Use
  Company Number: FR-BRISTOL-MYERS SQUIBB COMPANY-16256604

PATIENT
  Age: 63 Year
  Sex: Male

DRUGS (8)
  1. ARESTAL [Concomitant]
     Indication: DIARRHOEA
     Route: 048
  2. FLUDROCORTISONE ACETATE [Concomitant]
     Route: 048
  3. LEVOTHYROXINE SODIUM [Concomitant]
     Indication: HYPOTHYROIDISM
     Route: 048
  4. ROCEPHIN [Concomitant]
     Indication: LUNG DISORDER
     Route: 042
     Dates: start: 20111002, end: 20111004
  5. HYDROCORTISONE [Concomitant]
     Route: 048
  6. OMEPRAZOLE [Concomitant]
     Route: 048
  7. SILODOSIN [Concomitant]
     Indication: BENIGN PROSTATIC HYPERPLASIA
     Route: 048
  8. LYSODREN [Suspect]
     Indication: ADRENOCORTICAL CARCINOMA
     Route: 048
     Dates: start: 20060101

REACTIONS (3)
  - DISORIENTATION [None]
  - FEELING DRUNK [None]
  - CONFUSIONAL STATE [None]
